FAERS Safety Report 7672444-6 (Version None)
Quarter: 2011Q3

REPORT INFORMATION
  Report Type: 
  Country: None (occurrence: None)
  Receive Date: 20110809
  Receipt Date: 20110805
  Transmission Date: 20111222
  Serious: Yes (Hospitalization)
  Sender: FDA-Public Use
  Company Number: IT-MERCK-1107ITA00057

PATIENT
  Age: 61 Year
  Sex: Female

DRUGS (14)
  1. METFORMIN [Concomitant]
     Route: 048
  2. PRAVASTATIN SODIUM [Concomitant]
     Route: 048
     Dates: start: 20110101, end: 20110622
  3. CHOLECALCIFEROL [Concomitant]
     Route: 048
  4. ALLOPURINOL [Concomitant]
     Route: 048
  5. AMLODIPINE BESYLATE [Concomitant]
     Indication: HYPERTENSION
     Route: 048
  6. ASPIRIN [Concomitant]
     Route: 048
  7. CLOPIDOGREL BISULFATE [Concomitant]
     Route: 048
  8. BISOPROLOL FUMARATE [Concomitant]
     Route: 048
  9. PANTOPRAZOLE SODIUM [Concomitant]
     Route: 048
  10. JANUVIA [Suspect]
     Indication: TYPE 2 DIABETES MELLITUS
     Route: 048
     Dates: start: 20080101, end: 20110722
  11. OCTREOTIDE [Concomitant]
     Route: 030
  12. OMEGA-3 ACID ETHYL ESTERS [Concomitant]
     Route: 065
  13. SIMVASTATIN [Suspect]
     Indication: DYSLIPIDAEMIA
     Route: 048
     Dates: start: 20110622, end: 20110719
  14. REPAGLINIDE [Concomitant]
     Route: 048

REACTIONS (1)
  - RHABDOMYOLYSIS [None]
